FAERS Safety Report 13114690 (Version 1)
Quarter: 2017Q1

REPORT INFORMATION
  Report Type: Spontaneous
  Country: US (occurrence: US)
  Receive Date: 20170113
  Receipt Date: 20170113
  Transmission Date: 20170428
  Serious: Yes (Other)
  Sender: FDA-Public Use
  Company Number: US-TEVA-729433USA

PATIENT
  Sex: Female
  Weight: 73 kg

DRUGS (2)
  1. ESTRADIOL. [Suspect]
     Active Substance: ESTRADIOL
     Dates: start: 2016
  2. ESTRADIOL. [Suspect]
     Active Substance: ESTRADIOL
     Dates: start: 2016

REACTIONS (5)
  - Product substitution issue [Unknown]
  - Arrhythmia [Unknown]
  - Hypertension [Unknown]
  - Dyspnoea [Unknown]
  - Pain in extremity [Unknown]

NARRATIVE: CASE EVENT DATE: 2016
